FAERS Safety Report 4919667-4 (Version None)
Quarter: 2006Q1

REPORT INFORMATION
  Report Type: 
  Country: None (occurrence: None)
  Receive Date: 20060216
  Receipt Date: 20060208
  Transmission Date: 20060701
  Serious: Yes (Life-Threatening, Hospitalization)
  Sender: FDA-Public Use
  Company Number: 28530

PATIENT
  Age: 80 Year
  Sex: Female

DRUGS (9)
  1. FLECAINIDE ACETATE [Suspect]
     Dosage: 200 MG (100 MG, 2 IN 1 DAY(S)), ORAL
     Route: 048
     Dates: start: 20051101, end: 20051222
  2. FUROSEMIDE [Suspect]
     Dosage: ORAL
     Route: 048
     Dates: start: 20030101, end: 20051222
  3. KENZEN (CANDESARTAN CILEXETIL) [Suspect]
     Dosage: 1 DOSAGE FORMS (1 DOSAGE FORMS, 1 IN 1 DAY(S)), OIRAL
     Route: 048
     Dates: start: 20050901, end: 20051222
  4. INEXIUM (ESOMEPRAZOLE) [Suspect]
     Dosage: 20 MG (20 MG, 1 IN 1 DAY(S)), ORAL
     Route: 048
     Dates: start: 20030101, end: 20051222
  5. KARDEGIC (ACETYLSALICYLIC  LYSINE) [Suspect]
     Dosage: 160 MG (160 MG, 1 IN 1 DAY(S)), ORAL
     Route: 048
     Dates: start: 20030101, end: 20051222
  6. PRAVASTATIN [Suspect]
     Dosage: ORAL
     Route: 048
     Dates: start: 20050901, end: 20051222
  7. OROCAL (CALCIUM CARBONATE) [Suspect]
     Dosage: ORAL
     Route: 048
     Dates: end: 20051222
  8. TORENTAL LP (PENTOXIFYLLINE) [Suspect]
     Dosage: ORAL
     Route: 048
     Dates: end: 20051222
  9. TRIVASTAL (PIRIBEDIL) [Suspect]
     Dosage: ORAL
     Route: 048
     Dates: end: 20051222

REACTIONS (4)
  - AGRANULOCYTOSIS [None]
  - LEUKOPENIA [None]
  - OESOPHAGEAL CANDIDIASIS [None]
  - PYREXIA [None]
